FAERS Safety Report 4306766-3 (Version None)
Quarter: 2004Q1

REPORT INFORMATION
  Report Type: 
  Country: None (occurrence: None)
  Receive Date: 20040225
  Receipt Date: 20040210
  Transmission Date: 20041129
  Serious: Yes (Hospitalization)
  Sender: FDA-Public Use
  Company Number: US_0402100689

PATIENT
  Age: 66 Year
  Sex: Female
  Weight: 61 kg

DRUGS (3)
  1. HUMALOG [Suspect]
     Indication: DIABETES MELLITUS
     Dosage: 6 U/3 DAY
     Dates: start: 19970101
  2. INSULIN [Suspect]
     Indication: DIABETES MELLITUS
     Dates: start: 19780101
  3. LANTUS [Concomitant]

REACTIONS (5)
  - AUTOIMMUNE THYROIDITIS [None]
  - BLISTER [None]
  - CARDIAC DISORDER [None]
  - DYSPNOEA [None]
  - RASH PRURITIC [None]
